FAERS Safety Report 10851817 (Version 1)
Quarter: 2015Q1

REPORT INFORMATION
  Report Type: Spontaneous
  Country: US (occurrence: US)
  Receive Date: 20150222
  Receipt Date: 20150222
  Transmission Date: 20150721
  Serious: No
  Sender: FDA-Public Use
  Company Number: US-ALLERGAN-1412623US

PATIENT
  Sex: Female

DRUGS (2)
  1. BOTOX COSMETIC [Suspect]
     Active Substance: ONABOTULINUMTOXINA
     Indication: SKIN WRINKLING
  2. BOTOX COSMETIC [Suspect]
     Active Substance: ONABOTULINUMTOXINA
     Indication: SKIN WRINKLING
     Dosage: 25 UNITS, SINGLE
     Route: 030
     Dates: start: 20140512, end: 20140512

REACTIONS (11)
  - Muscular weakness [Unknown]
  - Flushing [Unknown]
  - Dyskinesia [Unknown]
  - Dehydration [Unknown]
  - Cough [Not Recovered/Not Resolved]
  - Viral infection [Unknown]
  - Pain [Unknown]
  - Feeling abnormal [Unknown]
  - Upper respiratory tract infection [Recovered/Resolved]
  - Asthenia [Unknown]
  - Nausea [Unknown]
